FAERS Safety Report 6522738-2 (Version None)
Quarter: 2009Q4

REPORT INFORMATION
  Report Type: 
  Country: None (occurrence: None)
  Receive Date: 20091222
  Receipt Date: 20091211
  Transmission Date: 20100525
  Serious: Yes (Hospitalization, Other)
  Sender: FDA-Public Use
  Company Number: 2009SP031806

PATIENT
  Sex: Female

DRUGS (1)
  1. IMPLANON [Suspect]
     Indication: CONTRACEPTION
     Dosage: 1 DF;
     Dates: end: 20090101

REACTIONS (4)
  - BENIGN INTRACRANIAL HYPERTENSION [None]
  - CONDITION AGGRAVATED [None]
  - HEADACHE [None]
  - PAPILLOEDEMA [None]
